FAERS Safety Report 5778759-0 (Version None)
Quarter: 2008Q2

REPORT INFORMATION
  Report Type: 
  Country: None (occurrence: None)
  Receive Date: 20080619
  Receipt Date: 20080617
  Transmission Date: 20081010
  Serious: No
  Sender: FDA-Public Use
  Company Number: US-ASTRAZENECA-2008UW07008

PATIENT
  Age: 22258 Day
  Sex: Female
  Weight: 77.1 kg

DRUGS (13)
  1. SYMBICORT [Suspect]
     Indication: ASTHMA
     Dosage: 80/4.5 UG - 2 PUFFS DAILY
     Route: 055
     Dates: start: 20080404
  2. SYMBICORT [Suspect]
     Dosage: 160/4.5 UG - 2 PUFFS DAILY
     Route: 055
  3. SYMBICORT [Suspect]
     Dosage: 160/4.5 UG - 2 PUFFS BID
     Route: 055
  4. PULMICORT [Suspect]
     Indication: ASTHMA
     Dosage: 1 PUFF 90 UG
     Route: 055
     Dates: start: 20080404
  5. SYNTHROID [Concomitant]
  6. XANAX [Concomitant]
  7. AVAPRO [Concomitant]
  8. NEXIUM [Concomitant]
     Route: 048
  9. CORTEF [Concomitant]
  10. ANTIOXIDANTS [Concomitant]
  11. VITAMINS [Concomitant]
  12. VENTOLIN [Concomitant]
  13. AEROBID [Concomitant]

REACTIONS (5)
  - CONDITION AGGRAVATED [None]
  - COUGH [None]
  - PARAESTHESIA ORAL [None]
  - RESPIRATORY TRACT INFECTION [None]
  - THROAT IRRITATION [None]
